FAERS Safety Report 13696828 (Version 1)
Quarter: 2017Q2

REPORT INFORMATION
  Report Type: Report from Study
  Country: KR (occurrence: KR)
  Receive Date: 20170628
  Receipt Date: 20170628
  Transmission Date: 20170830
  Serious: Yes (Hospitalization)
  Sender: FDA-Public Use
  Company Number: KR-EISAI MEDICAL RESEARCH-EC-2017-028716

PATIENT
  Age: 52 Year
  Sex: Female
  Weight: 53.7 kg

DRUGS (14)
  1. HALAVEN [Suspect]
     Active Substance: ERIBULIN MESYLATE
     Route: 041
     Dates: start: 20161021, end: 20161028
  2. DUROGESIC [Concomitant]
     Active Substance: FENTANYL
  3. CELECOXIB. [Concomitant]
     Active Substance: CELECOXIB
  4. MIRTAX ODT [Concomitant]
  5. MYUNGIN TRAZODONE HCL [Concomitant]
  6. ALPRAZOLAM. [Concomitant]
     Active Substance: ALPRAZOLAM
  7. LYRICA [Concomitant]
     Active Substance: PREGABALIN
  8. HARNAL [Concomitant]
     Active Substance: TAMSULOSIN HYDROCHLORIDE
  9. VENLAFAXINE SR [Concomitant]
  10. HALAVEN [Suspect]
     Active Substance: ERIBULIN MESYLATE
     Indication: BREAST CANCER METASTATIC
     Route: 041
     Dates: start: 20160929, end: 20161006
  11. PARAMACET [Concomitant]
     Active Substance: ACETAMINOPHEN\TRAMADOL
  12. CURAN [Concomitant]
     Active Substance: RANITIDINE HYDROCHLORIDE
  13. MAGMIL [Concomitant]
     Active Substance: MAGNESIUM HYDROXIDE
  14. TAZOCIN [Concomitant]
     Active Substance: PIPERACILLIN SODIUM\TAZOBACTAM SODIUM

REACTIONS (2)
  - Neutropenia [Recovered/Resolved]
  - Pyrexia [Recovered/Resolved]

NARRATIVE: CASE EVENT DATE: 20161031
